FAERS Safety Report 9688281 (Version 1)
Quarter: 2013Q4

REPORT INFORMATION
  Report Type: Spontaneous
  Country: US (occurrence: None)
  Receive Date: 20131113
  Receipt Date: 20131113
  Transmission Date: 20140711
  Serious: No
  Sender: FDA-Public Use
  Company Number: None

PATIENT
  Age: 49 None
  Sex: Female

DRUGS (3)
  1. AMLODOPINE/ATORVASTATIN [Suspect]
     Indication: HYPERTENSION
     Dates: start: 20110822, end: 20120425
  2. DICLOFENAC [Suspect]
     Indication: OSTEOARTHRITIS
     Dates: start: 20111017, end: 20120425
  3. DOXYCYCLINE [Suspect]
     Indication: SINUSITIS
     Dates: start: 20120219, end: 20120311

REACTIONS (4)
  - Drug-induced liver injury [None]
  - Sinusitis [None]
  - Nausea [None]
  - Decreased appetite [None]
